FAERS Safety Report 8435498-5 (Version None)
Quarter: 2012Q2

REPORT INFORMATION
  Report Type: 
  Country: None (occurrence: None)
  Receive Date: 20120614
  Receipt Date: 20120605
  Transmission Date: 20120825
  Serious: Yes (Hospitalization)
  Sender: FDA-Public Use
  Company Number: US-BAYER-2012-057081

PATIENT
  Age: 44 Year
  Sex: Female

DRUGS (3)
  1. YAZ [Suspect]
  2. DROSPIRENONE AND ETHINYL ESTRADIOL [Suspect]
  3. ASPIRIN [Concomitant]
     Dosage: UNK
     Dates: start: 20110619

REACTIONS (1)
  - PULMONARY EMBOLISM [None]
